FAERS Safety Report 8252837-9 (Version None)
Quarter: 2012Q2

REPORT INFORMATION
  Report Type: 
  Country: None (occurrence: None)
  Receive Date: 20120402
  Receipt Date: 20120224
  Transmission Date: 20120825
  Serious: No
  Sender: FDA-Public Use
  Company Number: US-ABBOTT-12P-163-0909623-00

PATIENT
  Sex: Male
  Weight: 67.646 kg

DRUGS (11)
  1. OXYCODONE HCL [Concomitant]
     Indication: PAIN
  2. VITAMIN D [Concomitant]
     Indication: VITAMIN D DEFICIENCY
     Dosage: 2000 IU (INTERNATIONAL UNIT) DAILY
  3. COMPAZINE [Concomitant]
     Indication: NAUSEA
  4. CARDURA [Concomitant]
     Indication: HYPERTENSION
  5. NEXIUM [Concomitant]
     Indication: GASTROOESOPHAGEAL REFLUX DISEASE
  6. SEROQUEL [Concomitant]
     Indication: BIPOLAR DISORDER
  7. ANDROGEL [Suspect]
     Indication: BLOOD TESTOSTERONE DECREASED
     Dates: start: 20120206
  8. ZOLPIDEM [Concomitant]
     Indication: INSOMNIA
  9. CELEXA [Concomitant]
     Indication: BIPOLAR DISORDER
  10. DURAGESIC-100 [Concomitant]
     Indication: PAIN
     Dosage: PATCH
  11. CLONAZEPAM [Concomitant]
     Indication: BIPOLAR DISORDER

REACTIONS (2)
  - ANGER [None]
  - ABNORMAL DREAMS [None]
